FAERS Safety Report 22973275 (Version 4)
Quarter: 2023Q4

REPORT INFORMATION
  Report Type: Spontaneous
  Country: US (occurrence: US)
  Receive Date: 20230922
  Receipt Date: 20231017
  Transmission Date: 20240109
  Serious: No
  Sender: FDA-Public Use
  Company Number: US-IDORSIA-006967-2023-US

PATIENT
  Age: 76 Year
  Sex: Female

DRUGS (2)
  1. QUVIVIQ [Suspect]
     Active Substance: DARIDOREXANT
     Indication: Insomnia
     Dosage: 25 MG, QD
     Route: 048
     Dates: start: 20230711, end: 202309
  2. QUVIVIQ [Suspect]
     Active Substance: DARIDOREXANT
     Dosage: 50 MG, QD
     Route: 048
     Dates: start: 20230926

REACTIONS (8)
  - Vertigo [Recovered/Resolved]
  - Hypertension [Recovered/Resolved]
  - Malaise [Recovered/Resolved]
  - Product packaging quantity issue [Unknown]
  - Product container seal issue [Unknown]
  - Product packaging issue [Unknown]
  - Headache [Recovered/Resolved]
  - Drug ineffective [Recovering/Resolving]

NARRATIVE: CASE EVENT DATE: 20230906
